FAERS Safety Report 15191410 (Version 1)
Quarter: 2018Q3

REPORT INFORMATION
  Report Type: Spontaneous
  Country: US (occurrence: US)
  Receive Date: 20180724
  Receipt Date: 20180724
  Transmission Date: 20181010
  Serious: Yes (Other)
  Sender: FDA-Public Use
  Company Number: US-TEVA-2018-US-928951

PATIENT
  Sex: Female

DRUGS (2)
  1. COPAXONE [Suspect]
     Active Substance: GLATIRAMER ACETATE
     Indication: MULTIPLE SCLEROSIS
     Dosage: FORM STRENGTH: UNKNOWN
     Route: 065
  2. TYSABRI [Suspect]
     Active Substance: NATALIZUMAB
     Indication: MULTIPLE SCLEROSIS
     Route: 065
     Dates: start: 201802

REACTIONS (6)
  - Fatigue [Unknown]
  - Multiple sclerosis [Recovered/Resolved]
  - Multiple sclerosis relapse [Unknown]
  - Progressive multifocal leukoencephalopathy [Unknown]
  - Somnolence [Unknown]
  - Drug ineffective [Unknown]

NARRATIVE: CASE EVENT DATE: 201805
